FAERS Safety Report 10404413 (Version 1)
Quarter: 2014Q1

REPORT INFORMATION
  Report Type: Spontaneous
  Country: US (occurrence: None)
  Receive Date: 20140214
  Receipt Date: 20140214
  Transmission Date: 20141002
  Serious: No
  Sender: FDA-Public Use
  Company Number: A-NJ2014-93640

PATIENT
  Age: 69 Year
  Sex: Female

DRUGS (3)
  1. OPSUMIT (MACITENTAN) [Suspect]
     Indication: CARDIAC DISORDER
     Route: 048
     Dates: start: 201312
  2. REMODULIN (TREPROSTINIL SODIUM) [Concomitant]
  3. ADCIRCA (TADALAFIL) [Concomitant]

REACTIONS (4)
  - Abdominal pain upper [None]
  - Headache [None]
  - Swelling [None]
  - Presyncope [None]
